FAERS Safety Report 5724239-8 (Version None)
Quarter: 2008Q2

REPORT INFORMATION
  Report Type: 
  Country: None (occurrence: None)
  Receive Date: 20080428
  Receipt Date: 20080415
  Transmission Date: 20081010
  Serious: Yes (Hospitalization)
  Sender: FDA-Public Use
  Company Number: 230111J08BRA

PATIENT
  Sex: Male

DRUGS (1)
  1. REBIF [Suspect]
     Dates: start: 20061101

REACTIONS (1)
  - DENGUE FEVER [None]
